FAERS Safety Report 21580889 (Version 3)
Quarter: 2023Q1

REPORT INFORMATION
  Report Type: Report from Study
  Country: US (occurrence: US)
  Receive Date: 20221111
  Receipt Date: 20230222
  Transmission Date: 20230417
  Serious: No
  Sender: FDA-Public Use
  Company Number: US-ABBVIE-22K-163-4510838-00

PATIENT
  Age: 63 Year
  Sex: Female

DRUGS (6)
  1. RINVOQ [Suspect]
     Active Substance: UPADACITINIB
     Indication: Rheumatoid arthritis
     Dosage: THERAPY END DATE: 2022
     Route: 048
     Dates: start: 20220610
  2. RINVOQ [Suspect]
     Active Substance: UPADACITINIB
     Indication: Rheumatoid arthritis
     Dosage: THERAPY START AND END DATE: 2022
     Route: 048
  3. RINVOQ [Suspect]
     Active Substance: UPADACITINIB
     Indication: Rheumatoid arthritis
     Dosage: THERAPY START AND END DATE: 2022
     Route: 048
     Dates: start: 20220610
  4. RINVOQ [Suspect]
     Active Substance: UPADACITINIB
     Indication: Rheumatoid arthritis
     Dosage: THERAPY START : 2022
     Route: 048
  5. RINVOQ [Suspect]
     Active Substance: UPADACITINIB
     Indication: Rheumatoid arthritis
  6. MODERNA COVID-19 VACCINE [Concomitant]
     Active Substance: ELASOMERAN
     Indication: COVID-19 immunisation
     Dosage: ONE IN ONCE
     Route: 030

REACTIONS (10)
  - Joint effusion [Unknown]
  - Illness [Unknown]
  - Back pain [Unknown]
  - Inflammatory marker increased [Unknown]
  - COVID-19 [Unknown]
  - Eczema [Unknown]
  - Insomnia [Unknown]
  - Sinusitis [Unknown]
  - Joint swelling [Unknown]
  - Peripheral swelling [Unknown]

NARRATIVE: CASE EVENT DATE: 20220815
